FAERS Safety Report 6671486-7 (Version None)
Quarter: 2010Q2

REPORT INFORMATION
  Report Type: 
  Country: None (occurrence: None)
  Receive Date: 20100407
  Receipt Date: 20100330
  Transmission Date: 20101027
  Serious: Yes (Other)
  Sender: FDA-Public Use
  Company Number: US-MERCK-0810USA02086

PATIENT
  Age: 66 Year
  Sex: Female

DRUGS (3)
  1. FOSAMAX [Suspect]
     Indication: OSTEOPOROSIS
     Route: 048
     Dates: start: 19990101, end: 20080101
  2. FOSAMAX [Suspect]
     Route: 048
     Dates: end: 20080101
  3. [THERAPY UNSPECIFIED] [Concomitant]
     Indication: HYPERTENSION
     Route: 065
     Dates: start: 19900101, end: 20090101

REACTIONS (27)
  - ANGIOPATHY [None]
  - BLOOD CHOLESTEROL INCREASED [None]
  - BONE DENSITY DECREASED [None]
  - DENTAL CARIES [None]
  - EATING DISORDER [None]
  - EDENTULOUS [None]
  - EMOTIONAL DISTRESS [None]
  - EXOSTOSIS [None]
  - FISTULA DISCHARGE [None]
  - GINGIVAL DISORDER [None]
  - IMPAIRED HEALING [None]
  - INTERVERTEBRAL DISC PROTRUSION [None]
  - JAW DISORDER [None]
  - LYMPHADENOPATHY [None]
  - NECROSIS [None]
  - ORAL DISORDER [None]
  - ORAL INFECTION [None]
  - OSTEOMYELITIS [None]
  - OSTEONECROSIS [None]
  - PARAESTHESIA [None]
  - RENAL DISORDER [None]
  - SPINAL OSTEOARTHRITIS [None]
  - SPONDYLOLISTHESIS [None]
  - SWELLING [None]
  - TEMPOROMANDIBULAR JOINT SYNDROME [None]
  - TOOTH DISORDER [None]
  - TRISMUS [None]
